FAERS Safety Report 24761243 (Version 1)
Quarter: 2024Q4

REPORT INFORMATION
  Report Type: Spontaneous
  Country: SE (occurrence: SE)
  Receive Date: 20241220
  Receipt Date: 20241220
  Transmission Date: 20250114
  Serious: Yes (Other)
  Sender: ABBVIE
  Company Number: SE-JNJFOC-20241242189

PATIENT

DRUGS (1)
  1. IMBRUVICA [Suspect]
     Active Substance: IBRUTINIB
     Indication: Chronic lymphocytic leukaemia
     Route: 048
     Dates: start: 2020

REACTIONS (3)
  - Blepharitis [Recovered/Resolved]
  - Iritis [Unknown]
  - Influenza [Unknown]

NARRATIVE: CASE EVENT DATE: 20230101
